FAERS Safety Report 4470990-X (Version None)
Quarter: 2004Q4

REPORT INFORMATION
  Report Type: 
  Country: None (occurrence: None)
  Receive Date: 20041011
  Receipt Date: 20041001
  Transmission Date: 20050328
  Serious: Yes (Life-Threatening, Hospitalization, Disabling)
  Sender: FDA-Public Use
  Company Number: US-MERCK-0410USA00321

PATIENT
  Age: 48 Year
  Sex: Male

DRUGS (3)
  1. SOMA [Concomitant]
     Route: 065
  2. VIOXX [Suspect]
     Indication: REFLEX SYMPATHETIC DYSTROPHY
     Route: 048
     Dates: start: 19990101, end: 20040901
  3. VIOXX [Suspect]
     Indication: PAIN
     Route: 048
     Dates: start: 19990101, end: 20040901

REACTIONS (4)
  - BILIARY NEOPLASM [None]
  - COLONIC POLYP [None]
  - HEPATIC ENZYME INCREASED [None]
  - RASH [None]
